FAERS Safety Report 12625171 (Version 1)
Quarter: 2016Q3

REPORT INFORMATION
  Report Type: Spontaneous
  Country: US (occurrence: US)
  Receive Date: 20160805
  Receipt Date: 20160805
  Transmission Date: 20161109
  Serious: Yes (Other)
  Sender: FDA-Public Use
  Company Number: US-BAYER-2015-375668

PATIENT
  Age: 57 Year
  Sex: Female

DRUGS (5)
  1. XARELTO [Suspect]
     Active Substance: RIVAROXABAN
     Indication: CEREBROVASCULAR ACCIDENT PROPHYLAXIS
  2. IBUPROFEN. [Suspect]
     Active Substance: IBUPROFEN
     Indication: PRODUCT USED FOR UNKNOWN INDICATION
     Dosage: UNK
     Route: 065
  3. XARELTO [Suspect]
     Active Substance: RIVAROXABAN
     Indication: EMBOLISM
     Dosage: 20 MG, UNK
     Route: 048
     Dates: start: 20150123, end: 20150328
  4. XARELTO [Suspect]
     Active Substance: RIVAROXABAN
     Indication: ATRIAL FIBRILLATION
     Dosage: 10 MG, UNK
     Route: 048
     Dates: start: 20150430, end: 20150511
  5. ACETYLSALICYLIC ACID({=100 MG) [Suspect]
     Active Substance: ASPIRIN
     Indication: CARDIAC DISORDER
     Dosage: 81 MG, QD
     Route: 065

REACTIONS (15)
  - Incorrect dose administered [Unknown]
  - Diverticulum [None]
  - Large intestine polyp [None]
  - Oedema [None]
  - Gastrointestinal haemorrhage [Recovered/Resolved]
  - Haemorrhagic anaemia [None]
  - Headache [None]
  - Reactive gastropathy [None]
  - Syncope [None]
  - Atrial fibrillation [None]
  - Off label use [Unknown]
  - Arthralgia [None]
  - Myalgia [None]
  - Oropharyngeal pain [None]
  - Hiatus hernia [None]

NARRATIVE: CASE EVENT DATE: 20150413
